FAERS Safety Report 4286228-2 (Version None)
Quarter: 2004Q1

REPORT INFORMATION
  Report Type: 
  Country: None (occurrence: None)
  Receive Date: 20040205
  Receipt Date: 20040127
  Transmission Date: 20041129
  Serious: Yes (Hospitalization)
  Sender: FDA-Public Use
  Company Number: GB-BRISTOL-MYERS SQUIBB COMPANY-12488607

PATIENT
  Age: 44 Year
  Sex: Male
  Weight: 74 kg

DRUGS (5)
  1. CARBOPLATIN [Suspect]
     Indication: NON-SMALL CELL LUNG CANCER
     Dosage: DOSING ON DAY 1
     Dates: start: 20040105, end: 20040105
  2. GEMZAR [Suspect]
     Indication: NON-SMALL CELL LUNG CANCER
     Dosage: DOSING ON DAY 1 + 8
     Route: 042
     Dates: start: 20040105, end: 20040105
  3. MORPHINE SULFATE [Concomitant]
     Route: 048
  4. ZOPICLONE [Concomitant]
     Route: 048
  5. MOTILIUM [Concomitant]
     Route: 048

REACTIONS (4)
  - BODY TEMPERATURE INCREASED [None]
  - HAEMOGLOBIN DECREASED [None]
  - MUSCULOSKELETAL STIFFNESS [None]
  - PAIN IN EXTREMITY [None]
